FAERS Safety Report 13415218 (Version 3)
Quarter: 2017Q2

REPORT INFORMATION
  Report Type: Report from Study
  Country: US (occurrence: US)
  Receive Date: 20170407
  Receipt Date: 20170428
  Transmission Date: 20170830
  Serious: Yes (Other)
  Sender: FDA-Public Use
  Company Number: US-JNJFOC-20170326466

PATIENT
  Age: 70 Year
  Sex: Male

DRUGS (6)
  1. IMBRUVICA [Suspect]
     Active Substance: IBRUTINIB
     Indication: WALDENSTROM^S MACROGLOBULINAEMIA
     Route: 048
     Dates: start: 20170215
  2. IMBRUVICA [Suspect]
     Active Substance: IBRUTINIB
     Indication: WALDENSTROM^S MACROGLOBULINAEMIA
     Route: 048
     Dates: start: 20170321
  3. IMBRUVICA [Suspect]
     Active Substance: IBRUTINIB
     Indication: WALDENSTROM^S MACROGLOBULINAEMIA
     Route: 048
     Dates: start: 20170220, end: 20170310
  4. IMBRUVICA [Suspect]
     Active Substance: IBRUTINIB
     Indication: NON-HODGKIN^S LYMPHOMA
     Route: 048
     Dates: start: 20170321
  5. IMBRUVICA [Suspect]
     Active Substance: IBRUTINIB
     Indication: NON-HODGKIN^S LYMPHOMA
     Route: 048
     Dates: start: 20170220, end: 20170310
  6. IMBRUVICA [Suspect]
     Active Substance: IBRUTINIB
     Indication: NON-HODGKIN^S LYMPHOMA
     Route: 048
     Dates: start: 20170215

REACTIONS (21)
  - Cardiac failure congestive [Unknown]
  - Cardiac murmur [Unknown]
  - Eye haemorrhage [Unknown]
  - Haematuria [Unknown]
  - Myalgia [Unknown]
  - Off label use [Unknown]
  - Haemolysis [Unknown]
  - Ear haemorrhage [Unknown]
  - Gingival bleeding [Unknown]
  - Haemorrhage urinary tract [Unknown]
  - Inappropriate schedule of drug administration [Recovered/Resolved]
  - Muscular weakness [Unknown]
  - Joint lock [Unknown]
  - Conjunctival haemorrhage [Unknown]
  - Dizziness [Unknown]
  - Mouth haemorrhage [Unknown]
  - Headache [Unknown]
  - Haemorrhage subcutaneous [Unknown]
  - Incorrect dose administered [Unknown]
  - Epistaxis [Unknown]
  - Bone pain [Unknown]

NARRATIVE: CASE EVENT DATE: 2017
